FAERS Safety Report 18795203 (Version 1)
Quarter: 2021Q1

REPORT INFORMATION
  Report Type: Spontaneous
  Country: US (occurrence: US)
  Receive Date: 20210127
  Receipt Date: 20210127
  Transmission Date: 20210419
  Serious: No
  Sender: FDA-Public Use
  Company Number: US-PARATEK PHARMACEUTICALS, INC.-2020PTK00269

PATIENT
  Sex: Male

DRUGS (2)
  1. UNSPECIFIED OTHER MEDICATIONS [Suspect]
     Active Substance: UNSPECIFIED INGREDIENT
     Dosage: UNK
  2. NUZYRA [Suspect]
     Active Substance: OMADACYCLINE
     Dosage: UNK

REACTIONS (1)
  - Abdominal pain upper [Unknown]
